FAERS Safety Report 26102155 (Version 1)
Quarter: 2025Q4

REPORT INFORMATION
  Report Type: Spontaneous
  Country: IL (occurrence: IL)
  Receive Date: 20251128
  Receipt Date: 20251128
  Transmission Date: 20260117
  Serious: Yes (Other)
  Sender: TEVA
  Company Number: IL-TEVA-VS-3395792

PATIENT
  Age: 41 Year
  Sex: Female

DRUGS (1)
  1. AJOVY [Suspect]
     Active Substance: FREMANEZUMAB-VFRM
     Indication: Product used for unknown indication
     Route: 065
     Dates: start: 2023

REACTIONS (5)
  - Ankle fracture [Unknown]
  - Device leakage [Unknown]
  - Device occlusion [Unknown]
  - Product closure removal difficult [Unknown]
  - Fall [Unknown]

NARRATIVE: CASE EVENT DATE: 20250901
